FAERS Safety Report 16841104 (Version 2)
Quarter: 2020Q2

REPORT INFORMATION
  Report Type: Report from Study
  Country: US (occurrence: US)
  Receive Date: 20190923
  Receipt Date: 20200511
  Transmission Date: 20200713
  Serious: No
  Sender: FDA-Public Use
  Company Number: US-SA-2019SA259560

PATIENT
  Sex: Female

DRUGS (2)
  1. DUPILUMAB [Suspect]
     Active Substance: DUPILUMAB
     Dosage: 300 MG, QOW
     Route: 058
     Dates: start: 20190627
  2. DUPILUMAB [Suspect]
     Active Substance: DUPILUMAB
     Indication: ASTHMA
     Dosage: UNK, 1X
     Route: 058

REACTIONS (3)
  - Injection site exfoliation [Unknown]
  - Product dose omission [Unknown]
  - Injection site dryness [Unknown]

NARRATIVE: CASE EVENT DATE: 201909
